FAERS Safety Report 7243176-3 (Version None)
Quarter: 2011Q1

REPORT INFORMATION
  Report Type: 
  Country: None (occurrence: None)
  Receive Date: 20110118
  Receipt Date: 20110103
  Transmission Date: 20110831
  Serious: Yes (Other)
  Sender: FDA-Public Use
  Company Number: US-DEXPHARM-20110009

PATIENT
  Sex: Male
  Weight: 65 kg

DRUGS (9)
  1. ALLOPURINOL [Concomitant]
  2. NAPROXEN [Concomitant]
  3. OMEPRAZOLE [Suspect]
     Indication: ERUCTATION
     Dosage: 20 MG ONCE A DAY, ORAL
     Route: 048
     Dates: start: 20101015, end: 20110103
  4. OXYCODONE HCL [Concomitant]
  5. ONDANSETRON [Concomitant]
  6. OMEPRAZOLE [Suspect]
     Indication: GASTROOESOPHAGEAL REFLUX DISEASE
     Dosage: 20 MG ONCE A DAY, ORAL
     Route: 048
     Dates: start: 20101015, end: 20110103
  7. HYDROCHLOROTHIAZIDE [Concomitant]
  8. ASPIRIN [Concomitant]
  9. LISINOPRIL [Concomitant]

REACTIONS (8)
  - INFLUENZA LIKE ILLNESS [None]
  - PAIN [None]
  - BALANCE DISORDER [None]
  - DIARRHOEA [None]
  - NAUSEA [None]
  - DYSPNOEA [None]
  - FATIGUE [None]
  - INSOMNIA [None]
